FAERS Safety Report 5963992-5 (Version None)
Quarter: 2008Q4

REPORT INFORMATION
  Report Type: 
  Country: None (occurrence: None)
  Receive Date: 20081124
  Receipt Date: 20081113
  Transmission Date: 20090506
  Serious: Yes (Hospitalization)
  Sender: FDA-Public Use
  Company Number: SG-BAXTER-2008BH010685

PATIENT
  Age: 60 Year
  Sex: Female
  Weight: 81 kg

DRUGS (31)
  1. EXTRANEAL [Suspect]
     Indication: RENAL FAILURE CHRONIC
     Route: 033
     Dates: start: 20080523
  2. PHYSIOSOL IN PLASTIC CONTAINER [Suspect]
     Indication: RENAL FAILURE CHRONIC
     Route: 033
     Dates: start: 20080523, end: 20080915
  3. PHYSIOSOL IN PLASTIC CONTAINER [Suspect]
     Route: 033
     Dates: start: 20081007, end: 20081007
  4. NUTRINEAL PD4 VIAFLEX [Suspect]
     Indication: RENAL FAILURE CHRONIC
     Route: 033
     Dates: start: 20080523
  5. PHYSIOSOL IN PLASTIC CONTAINER [Suspect]
     Indication: RENAL FAILURE CHRONIC
     Route: 033
     Dates: start: 20080523
  6. ASPIRIN [Concomitant]
     Indication: PROPHYLAXIS
     Route: 048
  7. OMEPRAZOLE [Concomitant]
     Indication: PROPHYLAXIS
     Route: 048
  8. MUPIROCIN [Concomitant]
     Indication: PROPHYLAXIS
     Route: 061
  9. VITAMIN B AND C COMPLEX [Concomitant]
     Indication: VITAMIN SUPPLEMENTATION
     Route: 048
  10. SIMVASTATIN [Concomitant]
     Indication: HYPERLIPIDAEMIA
     Route: 048
  11. POTASSIUM CHLORIDE [Concomitant]
     Indication: BLOOD POTASSIUM
     Route: 048
     Dates: start: 20080724
  12. SENNA [Concomitant]
     Indication: CONSTIPATION
     Route: 048
  13. CALCITRIOL [Concomitant]
     Indication: HYPOCALCAEMIA
     Route: 048
     Dates: start: 20080520
  14. AMLODIPINE [Concomitant]
     Indication: HYPERTENSION
     Route: 048
  15. FRUSEMIDE [Concomitant]
     Indication: FLUID RETENTION
     Route: 048
     Dates: end: 20070614
  16. AQUEOUS CREAM [Concomitant]
     Indication: PRURITUS
     Route: 061
     Dates: end: 20070614
  17. CALCIUM ACETATE [Concomitant]
     Indication: BLOOD PHOSPHORUS
     Route: 048
     Dates: end: 20070927
  18. EPOETIN BETA [Concomitant]
     Indication: ANAEMIA
     Route: 058
  19. CALCITRIOL [Concomitant]
     Route: 048
     Dates: start: 20070724, end: 20080520
  20. POTASSIUM CHLORIDE [Concomitant]
     Route: 048
     Dates: end: 20080728
  21. CALCITRIOL [Concomitant]
     Route: 048
     Dates: start: 20070929, end: 20080725
  22. CALCITRIOL [Concomitant]
     Route: 048
     Dates: end: 20070929
  23. HUMULIN N [Concomitant]
     Indication: DIABETES MELLITUS
     Route: 058
     Dates: start: 20080520, end: 20080526
  24. HUMULIN N [Concomitant]
     Route: 058
     Dates: start: 20080520, end: 20080526
  25. HUMULIN N [Concomitant]
     Route: 058
     Dates: start: 20080526, end: 20080820
  26. HUMULIN N [Concomitant]
     Route: 058
     Dates: start: 20080526, end: 20080820
  27. HUMULIN N [Concomitant]
     Route: 058
     Dates: start: 20080821, end: 20081008
  28. HUMULIN N [Concomitant]
     Route: 058
     Dates: start: 20080821, end: 20081008
  29. HUMULIN 70/30 [Concomitant]
     Indication: DIABETES MELLITUS
     Route: 058
     Dates: start: 20081008, end: 20081010
  30. HUMULIN 70/30 [Concomitant]
     Route: 058
     Dates: start: 20081008, end: 20081012
  31. HUMULIN 70/30 [Concomitant]
     Route: 058
     Dates: start: 20081012

REACTIONS (1)
  - CALCIPHYLAXIS [None]
